FAERS Safety Report 7553027-5 (Version None)
Quarter: 2011Q2

REPORT INFORMATION
  Report Type: 
  Country: None (occurrence: None)
  Receive Date: 20110616
  Receipt Date: 20110609
  Transmission Date: 20111010
  Serious: No
  Sender: FDA-Public Use
  Company Number: US-B.I. PHARMACEUTICALS,INC./RIDGEFIELD-2011-BP-13333BP

PATIENT
  Sex: Male

DRUGS (13)
  1. NAPROXEN (ALEVE) [Suspect]
     Indication: ARTHRITIS
     Route: 048
     Dates: end: 20110512
  2. CARVEDILOL [Concomitant]
     Indication: HYPERTENSION
  3. FISH OIL [Concomitant]
     Indication: PROPHYLAXIS
     Dosage: 2400 MG
     Route: 048
  4. LISINOPRIL [Concomitant]
     Indication: CARDIAC DISORDER
     Dosage: 10 MG
     Route: 048
  5. FUROSEMIDE [Concomitant]
     Indication: FLUID RETENTION
     Dosage: 120 MG
     Route: 048
  6. PRADAXA [Suspect]
     Indication: ATRIAL FIBRILLATION
     Dosage: 300 MG
     Route: 048
     Dates: start: 20110505
  7. CENTRUM SILVER [Concomitant]
  8. CARVEDILOL [Concomitant]
     Indication: CARDIAC DISORDER
     Dosage: 25 MG
     Route: 048
  9. ISOSORBIDE [Concomitant]
     Indication: CARDIAC DISORDER
     Dosage: 60 MG
     Route: 048
  10. LEVOXYL [Concomitant]
     Indication: THYROID DISORDER
     Dosage: 0.1 MG
     Route: 048
  11. NITROGLYCERIN [Concomitant]
     Indication: CHEST PAIN
     Route: 048
  12. ACETAMINOPHEN [Concomitant]
     Indication: ARTHRITIS
  13. GLUCOSAMINE SULFATE [Concomitant]
     Dosage: 1000 MG

REACTIONS (3)
  - MELAENA [None]
  - RECTAL HAEMORRHAGE [None]
  - CONSTIPATION [None]
